FAERS Safety Report 10407799 (Version 2)
Quarter: 2014Q3

REPORT INFORMATION
  Report Type: Spontaneous
  Country: CN (occurrence: CN)
  Receive Date: 20140825
  Receipt Date: 20140903
  Transmission Date: 20150326
  Serious: Yes (Hospitalization, Other)
  Sender: FDA-Public Use
  Company Number: CN-GILEAD-2014-0112578

PATIENT
  Age: 55 Year
  Sex: Male

DRUGS (3)
  1. ADEFOVIR DIPIVOXIL. [Suspect]
     Active Substance: ADEFOVIR DIPIVOXIL
     Indication: HEPATITIS B
     Dosage: 10MG PER DAY
     Route: 048
     Dates: start: 2003
  2. LAMIVUDINE. [Suspect]
     Active Substance: LAMIVUDINE
     Indication: HEPATITIS B
     Dosage: 100MG PER DAY
     Route: 065
  3. ADEFOVIR DIPIVOXIL. [Suspect]
     Active Substance: ADEFOVIR DIPIVOXIL
     Dosage: 10MG PER DAY
     Route: 048

REACTIONS (2)
  - Osteodystrophy [Unknown]
  - Fanconi syndrome acquired [Recovering/Resolving]

NARRATIVE: CASE EVENT DATE: 201102
